FAERS Safety Report 7626654-4 (Version None)
Quarter: 2011Q3

REPORT INFORMATION
  Report Type: 
  Country: None (occurrence: None)
  Receive Date: 20110721
  Receipt Date: 20110601
  Transmission Date: 20111222
  Serious: No
  Sender: FDA-Public Use
  Company Number: US-NOVEN-11US002554

PATIENT
  Sex: Female

DRUGS (11)
  1. ENBREL [Concomitant]
     Indication: PRODUCT USED FOR UNKNOWN INDICATION
     Dosage: 50 MG, 1/WEEK
     Route: 058
  2. FENTANYL [Suspect]
     Indication: RHEUMATOID ARTHRITIS
     Dosage: 50 UG, Q 72 HOURS
     Route: 062
     Dates: start: 20101101
  3. ZOLOFT [Concomitant]
     Indication: PRODUCT USED FOR UNKNOWN INDICATION
     Dosage: 50 MG, QD
     Route: 048
  4. M.V.I. [Concomitant]
     Indication: VITAMIN SUPPLEMENTATION
     Dosage: UNK
     Route: 048
  5. PLAQUENIL [Concomitant]
     Indication: PRODUCT USED FOR UNKNOWN INDICATION
     Dosage: 200 MG, QD
     Route: 048
     Dates: start: 20040101
  6. PRILOSEC [Concomitant]
     Indication: ABDOMINAL PAIN UPPER
     Dosage: 40 MG, BID
     Route: 048
  7. PAMELOR [Concomitant]
     Indication: PRODUCT USED FOR UNKNOWN INDICATION
     Dosage: 75 MG, BEDTIME
  8. METHOTREXATE [Concomitant]
     Indication: PRODUCT USED FOR UNKNOWN INDICATION
     Dosage: 25 MG, 1/WEEK
     Route: 058
  9. CALCIUM CARBONATE [Concomitant]
     Indication: VITAMIN SUPPLEMENTATION
     Dosage: UNK
     Route: 048
  10. VITAMIN B12                        /00056201/ [Concomitant]
     Indication: VITAMIN SUPPLEMENTATION
     Dosage: UNK
     Route: 048
  11. VITAMIN A [Concomitant]
     Indication: VITAMIN SUPPLEMENTATION
     Dosage: UNK
     Route: 048

REACTIONS (5)
  - APPLICATION SITE RASH [None]
  - APPLICATION SITE ERYTHEMA [None]
  - PRODUCT QUALITY ISSUE [None]
  - APPLICATION SITE VESICLES [None]
  - INADEQUATE ANALGESIA [None]
